FAERS Safety Report 24743130 (Version 1)
Quarter: 2024Q4

REPORT INFORMATION
  Report Type: Spontaneous
  Country: US (occurrence: US)
  Receive Date: 20241217
  Receipt Date: 20241217
  Transmission Date: 20250114
  Serious: No
  Sender: FERRING
  Company Number: US-FERRINGPH-2024FE05907

PATIENT
  Age: 34 Year
  Sex: Male

DRUGS (1)
  1. REBYOTA [Suspect]
     Active Substance: DONOR HUMAN STOOL
     Indication: Product used for unknown indication
     Dosage: 150 ML, ONCE/SINGLE
     Route: 054
     Dates: start: 20241016, end: 20241016

REACTIONS (3)
  - Oral herpes [Not Recovered/Not Resolved]
  - Pallor [Not Recovered/Not Resolved]
  - Diarrhoea [Not Recovered/Not Resolved]

NARRATIVE: CASE EVENT DATE: 20241018
